FAERS Safety Report 8882651 (Version 1)
Quarter: 2012Q4

REPORT INFORMATION
  Report Type: 
  Country: NL (occurrence: NL)
  Receive Date: 20121102
  Receipt Date: 20121102
  Transmission Date: 20130627
  Serious: Yes (Hospitalization)
  Sender: FDA-Public Use
  Company Number: PHHY2012NL098993

PATIENT
  Sex: Male

DRUGS (3)
  1. METFORMIN HCL [Suspect]
     Dosage: 1000 mg, UNK
     Route: 048
     Dates: start: 200812, end: 200905
  2. LANOXIN [Concomitant]
     Dosage: 1 DF, QD
  3. SINTROM MITIS [Concomitant]
     Dosage: 1 mg, QID

REACTIONS (3)
  - Cardiac failure [Unknown]
  - Heart rate increased [Recovered/Resolved]
  - Abdominal pain [Recovered/Resolved]
